FAERS Safety Report 4303212-0 (Version None)
Quarter: 2004Q1

REPORT INFORMATION
  Report Type: 
  Country: None (occurrence: None)
  Receive Date: 20040223
  Receipt Date: 20040212
  Transmission Date: 20041129
  Serious: Yes (Other)
  Sender: FDA-Public Use
  Company Number: 2004-02-0920

PATIENT

DRUGS (2)
  1. TEMODAR [Suspect]
     Dosage: ORAL
     Route: 048
  2. TEMODAR [Suspect]

REACTIONS (3)
  - HYPERSENSITIVITY [None]
  - LUNG DISORDER [None]
  - PNEUMONIA [None]
